FAERS Safety Report 6233882-1 (Version None)
Quarter: 2009Q2

REPORT INFORMATION
  Report Type: 
  Country: None (occurrence: None)
  Receive Date: 20090618
  Receipt Date: 20090605
  Transmission Date: 20091009
  Serious: Yes (Hospitalization)
  Sender: FDA-Public Use
  Company Number: ZA-BRISTOL-MYERS SQUIBB COMPANY-14661318

PATIENT
  Age: 4 Decade
  Sex: Male

DRUGS (2)
  1. EFAVIRENZ TABS [Suspect]
     Indication: HIV INFECTION
     Dosage: ALSO TAKEN ON 2009-2009
     Route: 048
     Dates: start: 20070101, end: 20090101
  2. TRUVADA [Concomitant]
     Dosage: STOPPED AND RESTARTED IN 2009
     Dates: start: 20070101, end: 20090101

REACTIONS (4)
  - ABDOMINAL PAIN [None]
  - GASTROINTESTINAL HAEMORRHAGE [None]
  - MELAENA [None]
  - PANCREATITIS [None]
